FAERS Safety Report 15589119 (Version 2)
Quarter: 2020Q3

REPORT INFORMATION
  Report Type: Report from Study
  Country: US (occurrence: US)
  Receive Date: 20181106
  Receipt Date: 20200724
  Transmission Date: 20201102
  Serious: Yes (Death, Hospitalization)
  Sender: FDA-Public Use
  Company Number: US-ROCHE-2162047

PATIENT
  Age: 71 Year
  Sex: Male
  Weight: 66.9 kg

DRUGS (3)
  1. VISMODEGIB. [Suspect]
     Active Substance: VISMODEGIB
     Indication: NEOPLASM
  2. VISMODEGIB. [Suspect]
     Active Substance: VISMODEGIB
     Indication: NON-SMALL CELL LUNG CANCER
  3. VISMODEGIB. [Suspect]
     Active Substance: VISMODEGIB
     Indication: NON-SMALL CELL LUNG CANCER
     Dosage: CYCLE: 28 DAYS. (ON DAYS 1?28. COURSES REPEAT EVERY 28 DAYS IN THE ABSENCE OF DISEASE PROGRESSION OR
     Route: 048
     Dates: start: 20180628

REACTIONS (3)
  - Disease progression [Fatal]
  - Pain in extremity [Not Recovered/Not Resolved]
  - Dyspnoea [Not Recovered/Not Resolved]

NARRATIVE: CASE EVENT DATE: 20180708
